FAERS Safety Report 4891007-9 (Version None)
Quarter: 2006Q1

REPORT INFORMATION
  Report Type: 
  Country: None (occurrence: None)
  Receive Date: 20060124
  Receipt Date: 20060124
  Transmission Date: 20060701
  Serious: Yes (Hospitalization)
  Sender: FDA-Public Use
  Company Number: None

PATIENT
  Sex: Female
  Weight: 97 kg

DRUGS (12)
  1. GEFITINIB 750MG TABS, ASTRAZENECA [Suspect]
     Indication: GLIOBLASTOMA MULTIFORME
     Dosage: 750 MG, PO, QD
     Route: 048
     Dates: start: 20040817
  2. RAPAMUNE [Suspect]
     Indication: GLIOBLASTOMA MULTIFORME
     Dosage: 1 MG PO, M-W-F
     Route: 048
     Dates: start: 20040817
  3. LOVENOX [Concomitant]
  4. SULFAMETH + TMP [Concomitant]
  5. PHENYTOIN EX [Concomitant]
  6. NYSTATIN [Concomitant]
  7. ZANTAC [Concomitant]
  8. LIPITOR [Concomitant]
  9. CALCIUM + D [Concomitant]
  10. POTASSIUM CL [Concomitant]
  11. PHENERGAN [Concomitant]
  12. REGLAN [Concomitant]

REACTIONS (5)
  - BLOOD PRESSURE ABNORMAL [None]
  - DEHYDRATION [None]
  - NAUSEA [None]
  - ORAL INTAKE REDUCED [None]
  - VOMITING [None]
